FAERS Safety Report 5500923-6 (Version None)
Quarter: 2007Q4

REPORT INFORMATION
  Report Type: 
  Country: None (occurrence: None)
  Receive Date: 20071029
  Receipt Date: 20071025
  Transmission Date: 20080405
  Serious: Yes (Death, Hospitalization)
  Sender: FDA-Public Use
  Company Number: PHNU2007DE03562

PATIENT
  Age: 41 Year
  Sex: Female

DRUGS (3)
  1. GLIANIMON [Concomitant]
     Dosage: 8 MG/DAY
  2. HALOPERIDOL DECANOATE [Concomitant]
     Dosage: 2 MG/DAY
  3. LEPONEX [Suspect]
     Dosage: 850 MG/DAY
     Route: 048

REACTIONS (1)
  - COLITIS ISCHAEMIC [None]
